FAERS Safety Report 14413542 (Version 4)
Quarter: 2018Q4

REPORT INFORMATION
  Report Type: Report from Study
  Country: FR (occurrence: FR)
  Receive Date: 20180119
  Receipt Date: 20181127
  Transmission Date: 20190204
  Serious: Yes (Hospitalization, Other)
  Sender: FDA-Public Use
  Company Number: FR-BIOGEN-2018BI00508655

PATIENT
  Age: 53 Year
  Sex: Female

DRUGS (6)
  1. CERIS [Concomitant]
     Active Substance: TROSPIUM CHLORIDE
     Indication: MICTURITION URGENCY
     Route: 065
     Dates: start: 20130901
  2. GILENYA [Suspect]
     Active Substance: FINGOLIMOD HYDROCHLORIDE
     Indication: RELAPSING-REMITTING MULTIPLE SCLEROSIS
     Route: 065
     Dates: start: 20140604, end: 20140612
  3. TECFIDERA [Suspect]
     Active Substance: DIMETHYL FUMARATE
     Indication: MULTIPLE SCLEROSIS
     Dosage: MAINTENANCE DOSE
     Route: 048
     Dates: start: 20140727
  4. TECFIDERA [Suspect]
     Active Substance: DIMETHYL FUMARATE
     Dosage: ONE DOSAGE FORM (DF) IN THE MORNING, AT MIDDAY AND IN THE EVENING
     Route: 065
  5. GILENYA [Suspect]
     Active Substance: FINGOLIMOD HYDROCHLORIDE
     Dosage: 1 DF, TID, IN THE MORNING, AT MIDDAY, AND IN THE EVENING
     Route: 065
     Dates: start: 20140604, end: 20140612
  6. VESICARE [Concomitant]
     Active Substance: SOLIFENACIN SUCCINATE
     Indication: PRODUCT USED FOR UNKNOWN INDICATION
     Dosage: 5 MG, (HALF TABLET IN CASE OF LONG TRIP) UNK
     Route: 065

REACTIONS (2)
  - Off label use [Unknown]
  - Hepatocellular injury [Recovered/Resolved]

NARRATIVE: CASE EVENT DATE: 20140612
